FAERS Safety Report 10453462 (Version 1)
Quarter: 2014Q3

REPORT INFORMATION
  Report Type: Spontaneous
  Country: JP (occurrence: JP)
  Receive Date: 20140915
  Receipt Date: 20140915
  Transmission Date: 20150326
  Serious: Yes (Death, Other)
  Sender: FDA-Public Use
  Company Number: JP-CELGENEUS-087-50794-14091595

PATIENT
  Age: 73 Year
  Sex: Female
  Weight: 58.6 kg

DRUGS (2)
  1. VIDAZA [Suspect]
     Active Substance: AZACITIDINE
     Indication: MYELODYSPLASTIC SYNDROME
     Dosage: 75 MILLIGRAM/SQ. METER
     Route: 065
     Dates: start: 201109, end: 201207
  2. VIDAZA [Suspect]
     Active Substance: AZACITIDINE
     Dosage: 75 MILLIGRAM/SQ. METER
     Route: 065
     Dates: start: 201210

REACTIONS (4)
  - Pneumonia bacterial [Unknown]
  - Acute myeloid leukaemia [Unknown]
  - Septic shock [Unknown]
  - Death [Fatal]

NARRATIVE: CASE EVENT DATE: 201302
